FAERS Safety Report 18716528 (Version 1)
Quarter: 2021Q1

REPORT INFORMATION
  Report Type: Spontaneous
  Country: DE (occurrence: DE)
  Receive Date: 20210108
  Receipt Date: 20210108
  Transmission Date: 20210419
  Serious: Yes (Hospitalization)
  Sender: FDA-Public Use
  Company Number: NVSC2021DE000606

PATIENT
  Age: 67 Year
  Sex: Male
  Weight: 94 kg

DRUGS (2)
  1. AMOXI ? 1 A PHARMA [Suspect]
     Active Substance: AMOXICILLIN
     Indication: ANTIBIOTIC PROPHYLAXIS
     Dosage: 1000 MG, Q12H (2MAL 1000MG TAGLICH)
     Route: 048
     Dates: start: 20201214, end: 20201218
  2. AMOXI ? 1 A PHARMA [Suspect]
     Active Substance: AMOXICILLIN
     Indication: JAW OPERATION

REACTIONS (3)
  - Epiploic appendagitis [Recovering/Resolving]
  - Constipation [Recovering/Resolving]
  - Abdominal pain [Recovering/Resolving]

NARRATIVE: CASE EVENT DATE: 20201218
